FAERS Safety Report 8857318 (Version 1)
Quarter: 2012Q4

REPORT INFORMATION
  Report Type: 
  Country: US (occurrence: US)
  Receive Date: 20121024
  Receipt Date: 20121024
  Transmission Date: 20130627
  Serious: No
  Sender: FDA-Public Use
  Company Number: US-BIOGENIDEC-2012BI045034

PATIENT
  Sex: Male

DRUGS (1)
  1. TYSABRI [Suspect]
     Indication: MULTIPLE SCLEROSIS
     Route: 042
     Dates: start: 20120425

REACTIONS (5)
  - Abasia [Not Recovered/Not Resolved]
  - Depressed mood [Not Recovered/Not Resolved]
  - Tremor [Unknown]
  - Mobility decreased [Unknown]
  - Fatigue [Unknown]
